FAERS Safety Report 7446785-1 (Version None)
Quarter: 2011Q2

REPORT INFORMATION
  Report Type: 
  Country: None (occurrence: None)
  Receive Date: 20110429
  Receipt Date: 20101025
  Transmission Date: 20111010
  Serious: Yes (Hospitalization)
  Sender: FDA-Public Use
  Company Number: US-ASTRAZENECA-2010SE50412

PATIENT
  Sex: Female
  Weight: 90.7 kg

DRUGS (5)
  1. NEXIUM [Suspect]
     Indication: GASTROOESOPHAGEAL REFLUX DISEASE
     Route: 048
     Dates: start: 20100301
  2. LASIX [Concomitant]
  3. ENDEROL [Concomitant]
  4. FLONASE [Concomitant]
  5. METFORMIN [Concomitant]

REACTIONS (4)
  - CHOKING [None]
  - DYSPNOEA [None]
  - UPPER-AIRWAY COUGH SYNDROME [None]
  - COUGH [None]
